FAERS Safety Report 16059378 (Version 1)
Quarter: 2019Q1

REPORT INFORMATION
  Report Type: Spontaneous
  Country: GB (occurrence: GB)
  Receive Date: 20190311
  Receipt Date: 20190311
  Transmission Date: 20190418
  Serious: Yes (Life-Threatening, Hospitalization)
  Sender: FDA-Public Use
  Company Number: GB-PFIZER INC-2019102555

PATIENT
  Age: 61 Year
  Sex: Female
  Weight: 51.8 kg

DRUGS (8)
  1. BACTERIOSTATIC SODIUM CHLORIDE [Suspect]
     Active Substance: SODIUM CHLORIDE
     Indication: MEDICATION DILUTION
     Dosage: UNK UNK, CYCLIC
     Route: 042
     Dates: start: 20181228, end: 20181228
  2. FLUOROURACIL. [Suspect]
     Active Substance: FLUOROURACIL
     Indication: PANCREATIC CARCINOMA
     Dosage: 3550 MG, UNK
     Route: 042
     Dates: start: 20181128, end: 20181228
  3. CREON [Suspect]
     Active Substance: PANCRELIPASE AMYLASE\PANCRELIPASE LIPASE\PANCRELIPASE PROTEASE
     Indication: ENZYME SUPPLEMENTATION
     Dosage: 2 CAPSULES WITH MEALS
     Dates: start: 20181128, end: 20181228
  4. FOLINIC ACID [Suspect]
     Active Substance: LEUCOVORIN
     Indication: PANCREATIC CARCINOMA
     Dosage: 350 MG, EVERY 2 WEEKS
     Route: 042
     Dates: start: 20181128, end: 20181228
  5. OXALIPLATIN. [Suspect]
     Active Substance: OXALIPLATIN
     Indication: PANCREATIC CARCINOMA
     Dosage: 126 MG, EVERY 2 WEEKS
     Route: 042
     Dates: start: 20181128, end: 20181228
  6. IRINOTECAN HCL [Suspect]
     Active Substance: IRINOTECAN HYDROCHLORIDE
     Indication: PANCREATIC CARCINOMA
     Dosage: 266 MG, EVERY 2 WEEKS IN 0.9% SODIUM CHLORIDE BP, VIA PICC LINE
     Route: 042
     Dates: start: 20181228, end: 20181228
  7. FLUOROURACIL. [Suspect]
     Active Substance: FLUOROURACIL
     Dosage: 592.5 MG, UNK
     Route: 040
     Dates: start: 20181128, end: 20181228
  8. CREON [Suspect]
     Active Substance: PANCRELIPASE AMYLASE\PANCRELIPASE LIPASE\PANCRELIPASE PROTEASE
     Indication: PANCREATECTOMY

REACTIONS (3)
  - Speech disorder [Recovered/Resolved]
  - Hemiparesis [Recovered/Resolved]
  - Hypersensitivity [Recovered/Resolved]

NARRATIVE: CASE EVENT DATE: 20181228
